FAERS Safety Report 7941286-6 (Version None)
Quarter: 2011Q4

REPORT INFORMATION
  Report Type: 
  Country: None (occurrence: None)
  Receive Date: 20111122
  Receipt Date: 20111106
  Transmission Date: 20120403
  Serious: Yes (Death)
  Sender: FDA-Public Use
  Company Number: FK201102585

PATIENT
  Age: 69 Year
  Sex: Female

DRUGS (3)
  1. AMIODARONE HCL [Suspect]
     Indication: PRODUCT USED FOR UNKNOWN INDICATION
     Dosage: INTRAVENOUS (NOT OTHERWISE SPECIFIED) ,400 MG, TID, ORAL
     Route: 042
  2. CEFTRIAXONE FOR INJECTION (MANUFACTURER UNKNOWN)(CEFTRIAXONE SODIUM)(C [Concomitant]
  3. COLCHICINE [Suspect]
     Indication: PERICARDITIS
     Dosage: 0.6 MG, TWICE DAIILY, ORAL

REACTIONS (10)
  - DRUG INTERACTION [None]
  - CARDIAC ARREST [None]
  - LEUKOCYTOSIS [None]
  - MULTI-ORGAN FAILURE [None]
  - CARDIOGENIC SHOCK [None]
  - VOMITING [None]
  - LEUKOPENIA [None]
  - DIARRHOEA [None]
  - NAUSEA [None]
  - TOXICITY TO VARIOUS AGENTS [None]
